FAERS Safety Report 7727047-1 (Version None)
Quarter: 2011Q3

REPORT INFORMATION
  Report Type: 
  Country: None (occurrence: None)
  Receive Date: 20110902
  Receipt Date: 20110824
  Transmission Date: 20111222
  Serious: Yes (Hospitalization, Other)
  Sender: FDA-Public Use
  Company Number: BR-BRISTOL-MYERS SQUIBB COMPANY-16009102

PATIENT
  Age: 80 Year
  Sex: Female
  Weight: 61 kg

DRUGS (8)
  1. VESANOID [Concomitant]
     Indication: LEUKAEMIA
     Dosage: 1DF= 8 TABS/DAY
     Route: 048
     Dates: start: 20110401
  2. PROPRANOLOL HYDROCHLORIDE [Concomitant]
     Indication: TREMOR
     Dosage: 1DF= 1 TAB/DAY
     Route: 048
     Dates: start: 20040101
  3. DORFLEX [Concomitant]
     Indication: PAIN
     Dosage: 1DF= 1 TAB
     Route: 048
  4. CLONAZEPAM [Concomitant]
     Indication: INSOMNIA
     Dosage: 1DF= 1 TAB ON 2000 OR 2001 AT NIGHT
     Route: 048
     Dates: start: 20000101
  5. IRBESARTAN [Suspect]
     Dosage: STARTED ABOUT 2000 OR 2001.
     Dates: start: 20000101
  6. HYGROTON [Concomitant]
     Indication: FLUID RETENTION
     Dosage: 1DF= 1 TAB ON 2000 OR 2001.
     Route: 048
     Dates: end: 20110601
  7. DORFLEX [Concomitant]
     Indication: HEADACHE
     Dosage: 1DF= 1 TAB
     Route: 048
  8. LASIX [Concomitant]
     Indication: FLUID RETENTION
     Dosage: 1DF= 0.5 UNIT NOS TAB.
     Route: 048
     Dates: start: 20110601

REACTIONS (3)
  - MYOCARDIAL INFARCTION [None]
  - OSTEOMYELITIS [None]
  - LEUKAEMIA [None]
